FAERS Safety Report 8929598 (Version 2)
Quarter: 2012Q4

REPORT INFORMATION
  Report Type: 
  Country: US (occurrence: US)
  Receive Date: 20121121
  Receipt Date: 20121212
  Transmission Date: 20130627
  Serious: Yes (Death, Hospitalization, Other)
  Sender: FDA-Public Use
  Company Number: US-ASTELLAS-1095410

PATIENT
  Sex: Female

DRUGS (1)
  1. TARCEVA [Suspect]
     Indication: LUNG NEOPLASM MALIGNANT
     Route: 048
     Dates: start: 20100608

REACTIONS (7)
  - Lung cancer metastatic [Fatal]
  - Abdominal pain [Unknown]
  - Blood urine present [Unknown]
  - Neck pain [Unknown]
  - Mediastinal mass [Unknown]
  - Neck mass [Unknown]
  - Small intestinal obstruction [Unknown]
